FAERS Safety Report 10079980 (Version 2)
Quarter: 2014Q2

REPORT INFORMATION
  Report Type: Spontaneous
  Country: AR (occurrence: AR)
  Receive Date: 20140415
  Receipt Date: 20140508
  Transmission Date: 20141212
  Serious: Yes (Hospitalization, Other)
  Sender: FDA-Public Use
  Company Number: AR-ABBVIE-14P-007-1224211-00

PATIENT
  Age: 45 Year
  Sex: Male

DRUGS (5)
  1. RITONAVIR [Suspect]
     Indication: HIV INFECTION
  2. TENOFOVIR [Interacting]
     Indication: HIV INFECTION
  3. EMTRICITABINE [Interacting]
     Indication: HIV INFECTION
  4. ATAZANAVIR [Interacting]
     Indication: HIV INFECTION
  5. MIGRAL [Interacting]
     Indication: MIGRAINE
     Dosage: 4 TABLETS UD

REACTIONS (18)
  - Diarrhoea [Recovered/Resolved]
  - Migraine [Recovered/Resolved]
  - Somnolence [Recovered/Resolved]
  - Headache [Recovered/Resolved]
  - Hyperhidrosis [Recovered/Resolved]
  - Pyrexia [Recovered/Resolved]
  - Rash [Recovered/Resolved]
  - Cyanosis [Recovered/Resolved]
  - Peripheral coldness [Recovered/Resolved]
  - Hypotension [Recovered/Resolved]
  - Arterial spasm [Recovered/Resolved]
  - Arterial disorder [Recovered/Resolved]
  - Peripheral pulse decreased [Recovered/Resolved]
  - Cyanosis [Recovered/Resolved]
  - Poisoning [Recovered/Resolved]
  - Peripheral vascular disorder [Recovered/Resolved]
  - Ergot poisoning [Recovered/Resolved]
  - Drug interaction [Recovered/Resolved]
